FAERS Safety Report 9868848 (Version 1)
Quarter: 2014Q1

REPORT INFORMATION
  Report Type: Spontaneous
  Country: JP (occurrence: JP)
  Receive Date: 20140204
  Receipt Date: 20140204
  Transmission Date: 20141002
  Serious: Yes (Death, Other)
  Sender: FDA-Public Use
  Company Number: JP-SPECTRUM PHARMACEUTICALS, INC.-14-F-JP-00017

PATIENT
  Age: 74 Year
  Sex: Male

DRUGS (4)
  1. FLUOROURACIL [Suspect]
     Indication: RECTAL CANCER
     Dosage: UNK
     Route: 042
  2. IRINOTECAN [Suspect]
     Indication: RECTAL CANCER
     Dosage: UNK
     Route: 042
  3. FOLINIC ACID [Suspect]
     Indication: RECTAL CANCER
     Dosage: UNK
     Route: 042
  4. BEVACIZUMAB [Suspect]
     Indication: RECTAL CANCER
     Route: 042

REACTIONS (2)
  - Hepatitis B [Unknown]
  - Hepatic failure [Fatal]
